FAERS Safety Report 5035107-1 (Version None)
Quarter: 2006Q2

REPORT INFORMATION
  Report Type: 
  Country: None (occurrence: None)
  Receive Date: 20060627
  Receipt Date: 20060615
  Transmission Date: 20061013
  Serious: Yes (Hospitalization)
  Sender: FDA-Public Use
  Company Number: PHHO2006TW09978

PATIENT
  Age: 66 Year
  Sex: Male
  Weight: 121 kg

DRUGS (3)
  1. ZOLEDRONIC ACID [Suspect]
     Indication: METASTASES TO BONE
     Dosage: 4 MG EVERY 3-4 WEEKS
     Route: 042
     Dates: start: 20060412
  2. CALCIUM GLUCONATE [Concomitant]
  3. VITAMIN D [Concomitant]

REACTIONS (9)
  - BLOOD CREATININE INCREASED [None]
  - DECREASED APPETITE [None]
  - FLANK PAIN [None]
  - HYDRONEPHROSIS [None]
  - HYPERKALAEMIA [None]
  - HYPERLIPIDAEMIA [None]
  - MALIGNANT NEOPLASM PROGRESSION [None]
  - NAUSEA [None]
  - RENAL FAILURE ACUTE [None]
